FAERS Safety Report 16111184 (Version 1)
Quarter: 2019Q2

REPORT INFORMATION
  Report Type: Spontaneous
  Country: US (occurrence: US)
  Receive Date: 20190322
  Receipt Date: 20190322
  Transmission Date: 20190711
  Serious: Yes (Other)
  Sender: FDA-Public Use
  Company Number: None

PATIENT
  Age: 19 Year
  Sex: Male
  Weight: 79.5 kg

DRUGS (3)
  1. CLOBAZAM (CAMBER) [Concomitant]
     Dates: start: 20190118, end: 20190225
  2. CLOBAZAM (BRECKENRIDGE) [Concomitant]
     Dates: start: 20190225, end: 20190322
  3. CLOBAZAM. [Suspect]
     Active Substance: CLOBAZAM
     Indication: EPILEPSY
     Route: 048
     Dates: start: 20190118, end: 20190322

REACTIONS (6)
  - Wheelchair user [None]
  - Insurance issue [None]
  - Treatment failure [None]
  - Balance disorder [None]
  - Product substitution issue [None]
  - Seizure [None]

NARRATIVE: CASE EVENT DATE: 20190118
